FAERS Safety Report 8192761-3 (Version None)
Quarter: 2012Q1

REPORT INFORMATION
  Report Type: 
  Country: None (occurrence: None)
  Receive Date: 20120308
  Receipt Date: 20120306
  Transmission Date: 20120608
  Serious: No
  Sender: FDA-Public Use
  Company Number: US-PFIZER INC-2012059232

PATIENT
  Sex: Female

DRUGS (5)
  1. IBUPROFEN (ADVIL) [Suspect]
     Indication: ARTHRALGIA
  2. CALCIUM CARBONATE [Concomitant]
     Dosage: UNK
  3. IBUPROFEN (ADVIL) [Suspect]
     Indication: MYALGIA
     Dosage: 600 MG, 2X/DAY
     Route: 048
     Dates: start: 20120229, end: 20120305
  4. LEVOTHYROXINE [Concomitant]
     Indication: THYROID DISORDER
     Dosage: UNK
  5. CRESTOR [Concomitant]
     Indication: BLOOD CHOLESTEROL INCREASED
     Dosage: UNK

REACTIONS (1)
  - ABDOMINAL PAIN UPPER [None]
